FAERS Safety Report 6142469-0 (Version None)
Quarter: 2009Q2

REPORT INFORMATION
  Report Type: 
  Country: None (occurrence: None)
  Receive Date: 20090401
  Receipt Date: 20090401
  Transmission Date: 20091009
  Serious: Yes (Hospitalization)
  Sender: FDA-Public Use
  Company Number: None

PATIENT
  Sex: Female

DRUGS (1)
  1. ACTOS [Suspect]
     Indication: TYPE 2 DIABETES MELLITUS
     Dosage: 30 MG 1 DAILY ORALLY
     Route: 048
     Dates: start: 20080111, end: 20080331

REACTIONS (4)
  - CARDIOVERSION [None]
  - CATHETERISATION CARDIAC [None]
  - DYSPNOEA [None]
  - OEDEMA PERIPHERAL [None]
